FAERS Safety Report 17797586 (Version 2)
Quarter: 2020Q2

REPORT INFORMATION
  Report Type: Spontaneous
  Country: US (occurrence: US)
  Receive Date: 20200518
  Receipt Date: 20200518
  Transmission Date: 20200714
  Serious: Yes (Other)
  Sender: FDA-Public Use
  Company Number: US-SHIRE-US202016295

PATIENT
  Sex: Female

DRUGS (4)
  1. LIALDA [Suspect]
     Active Substance: MESALAMINE
     Indication: COLITIS
     Dosage: UNK
     Route: 065
  2. XELJANZ [Concomitant]
     Active Substance: TOFACITINIB CITRATE
     Indication: HAEMORRHAGE
  3. PENTASA [Concomitant]
     Active Substance: MESALAMINE
     Indication: HAEMORRHAGE
  4. HUMIRA [Concomitant]
     Active Substance: ADALIMUMAB
     Indication: PRODUCT USED FOR UNKNOWN INDICATION

REACTIONS (5)
  - Colitis ulcerative [Unknown]
  - Condition aggravated [Unknown]
  - Rectal haemorrhage [Unknown]
  - Haematochezia [Unknown]
  - Inability to afford medication [Unknown]
